FAERS Safety Report 7430807-8 (Version None)
Quarter: 2011Q2

REPORT INFORMATION
  Report Type: 
  Country: None (occurrence: None)
  Receive Date: 20110421
  Receipt Date: 20110407
  Transmission Date: 20111010
  Serious: Yes (Hospitalization)
  Sender: FDA-Public Use
  Company Number: US-CELGENEUS-163-20785-11033636

PATIENT
  Age: 78 Year
  Sex: Female
  Weight: 77.18 kg

DRUGS (9)
  1. NEURONTIN [Concomitant]
     Dosage: 3 TABLET
     Route: 048
  2. LOTREL [Concomitant]
     Indication: HYPERTENSION
     Dosage: 5-20 MG
     Route: 048
  3. DEXAMETHASONE [Suspect]
     Indication: MULTIPLE MYELOMA
     Dosage: 40 MILLIGRAM
     Route: 048
     Dates: start: 20110125
  4. GLUCOPHAGE [Concomitant]
     Dosage: 500 MILLIGRAM
     Route: 048
  5. SIMVASTATIN [Concomitant]
     Dosage: 40 MILLIGRAM
     Route: 048
  6. COREG [Concomitant]
     Indication: HYPERTENSION
     Dosage: 6.25 MILLIGRAM
     Route: 048
     Dates: start: 20000101
  7. THALOMID [Suspect]
     Indication: MULTIPLE MYELOMA
     Dosage: 200 MILLIGRAM
     Route: 048
     Dates: start: 20110128
  8. GLIMEPIRIDE [Concomitant]
     Dosage: 2 MILLIGRAM
     Route: 048
  9. BONIVA [Concomitant]
     Indication: OSTEOPOROSIS
     Dosage: 150 MILLIGRAM
     Route: 065

REACTIONS (2)
  - HYPERGLYCAEMIA [None]
  - PNEUMONIA [None]
